FAERS Safety Report 5952837-5 (Version None)
Quarter: 2008Q4

REPORT INFORMATION
  Report Type: 
  Country: None (occurrence: None)
  Receive Date: 20081114
  Receipt Date: 20081105
  Transmission Date: 20090506
  Serious: Yes (Hospitalization)
  Sender: FDA-Public Use
  Company Number: NL-ALLERGAN-0812438US

PATIENT
  Sex: Female

DRUGS (2)
  1. BOTULINUM TOXIN TYPE A [Suspect]
     Indication: BLADDER PAIN
     Dosage: 200 UNITS, SINGLE
     Route: 043
     Dates: start: 20080409, end: 20080409
  2. BOTULINUM TOXIN TYPE A [Suspect]
     Indication: CYSTITIS INTERSTITIAL

REACTIONS (2)
  - ABDOMINAL PAIN UPPER [None]
  - NAUSEA [None]
